FAERS Safety Report 13542094 (Version 1)
Quarter: 2017Q2

REPORT INFORMATION
  Report Type: Report from Study
  Country: US (occurrence: US)
  Receive Date: 20170512
  Receipt Date: 20170512
  Transmission Date: 20170830
  Serious: Yes (Other)
  Sender: FDA-Public Use
  Company Number: US-GILEAD-2017-0259951

PATIENT
  Age: 70 Year
  Sex: Female

DRUGS (4)
  1. AMLODIPINE [Concomitant]
     Active Substance: AMLODIPINE BESYLATE
  2. AMBRISENTAN [Suspect]
     Active Substance: AMBRISENTAN
     Dosage: 10 MG, QD
     Route: 065
  3. AMBRISENTAN [Suspect]
     Active Substance: AMBRISENTAN
     Indication: PRODUCT USED FOR UNKNOWN INDICATION
     Dosage: 5 MG, QD
     Route: 065
     Dates: start: 20170222
  4. ADEMPAS [Concomitant]
     Active Substance: RIOCIGUAT

REACTIONS (10)
  - Dizziness [Unknown]
  - Thinking abnormal [Unknown]
  - Dyspnoea [Unknown]
  - Dyspepsia [Not Recovered/Not Resolved]
  - Flatulence [Not Recovered/Not Resolved]
  - Unevaluable event [Unknown]
  - Tremor [Unknown]
  - Influenza [Unknown]
  - Throat tightness [Unknown]
  - Hypersensitivity [Not Recovered/Not Resolved]
